FAERS Safety Report 18747789 (Version 1)
Quarter: 2021Q1

REPORT INFORMATION
  Report Type: Spontaneous
  Country: US (occurrence: US)
  Receive Date: 20210115
  Receipt Date: 20210115
  Transmission Date: 20210419
  Serious: Yes (Disabling, Other)
  Sender: FDA-Public Use
  Company Number: US-REGENERON PHARMACEUTICALS, INC.-2021-12065

PATIENT

DRUGS (4)
  1. EYLEA [Suspect]
     Active Substance: AFLIBERCEPT
     Dosage: OS, 2 MG, EVERY 29 DAYS
     Route: 031
     Dates: start: 20210106, end: 20210106
  2. EYLEA [Suspect]
     Active Substance: AFLIBERCEPT
     Indication: RETINAL HAEMORRHAGE
     Dosage: OS, EVERY 5 MONTHS
     Route: 031
  3. EYLEA [Suspect]
     Active Substance: AFLIBERCEPT
     Dosage: OS, 2 MG, EVERY 3 MONTHS
     Route: 031
  4. EYLEA [Suspect]
     Active Substance: AFLIBERCEPT
     Dosage: OS, 2 MG, EVERY 29 DAYS
     Route: 031
     Dates: start: 202006

REACTIONS (5)
  - Blood urea decreased [Unknown]
  - Blood creatinine abnormal [Unknown]
  - Intraocular pressure increased [Unknown]
  - Off label use [Unknown]
  - Blindness unilateral [Unknown]

NARRATIVE: CASE EVENT DATE: 202006
